FAERS Safety Report 5239509-X (Version None)
Quarter: 2007Q1

REPORT INFORMATION
  Report Type: 
  Country: None (occurrence: None)
  Receive Date: 20070216
  Receipt Date: 20070212
  Transmission Date: 20070707
  Serious: Yes (Death)
  Sender: FDA-Public Use
  Company Number: PHNU2006DE03836

PATIENT
  Sex: Male
  Weight: 92.6 kg

DRUGS (4)
  1. CLOZAPINE [Suspect]
     Indication: SCHIZOPHRENIA
     Dosage: UP TO 200 MG/DAY
     Route: 048
  2. ZYPREXA [Concomitant]
     Indication: SCHIZOPHRENIA
     Dosage: UP TO 45 MG/DAY
     Route: 048
  3. CIPRALEX [Concomitant]
     Indication: SCHIZOPHRENIA
     Dosage: 10 MG/DAY
     Route: 048
  4. PIRENZEPINE [Concomitant]

REACTIONS (7)
  - BLOOD ALCOHOL INCREASED [None]
  - DRUG LEVEL INCREASED [None]
  - DRUG SCREEN POSITIVE [None]
  - EOSINOPHILIC MYOCARDITIS [None]
  - INFLUENZA LIKE ILLNESS [None]
  - THERAPEUTIC AGENT URINE POSITIVE [None]
  - URINE CANNABINOIDS INCREASED [None]
